FAERS Safety Report 19691876 (Version 1)
Quarter: 2021Q3

REPORT INFORMATION
  Report Type: Spontaneous
  Country: HR (occurrence: HR)
  Receive Date: 20210812
  Receipt Date: 20210812
  Transmission Date: 20211014
  Serious: Yes (Other)
  Sender: FDA-Public Use
  Company Number: HR-PFIZER INC-202100990644

PATIENT
  Sex: Female
  Weight: 55 kg

DRUGS (4)
  1. IBUPROFEN. [Suspect]
     Active Substance: IBUPROFEN
     Dosage: 16 G, 1X/DAY, CCA 300 MG/KG
     Route: 048
     Dates: start: 202105, end: 202105
  2. ALPRAZOLAM. [Suspect]
     Active Substance: ALPRAZOLAM
     Dosage: 30 MG, 1X/DAY
     Route: 048
     Dates: start: 202105, end: 202105
  3. CERSON (NITRAZEPAM) [Suspect]
     Active Substance: NITRAZEPAM
     Dosage: 170 MG, 1X/DAY (34 TABLETS)
     Route: 048
     Dates: start: 202105, end: 202105
  4. SULPIRID [Suspect]
     Active Substance: SULPIRIDE
     Dosage: 36 DF, 1X/DAY (1 DF = 1 TABLET)
     Route: 048
     Dates: start: 202105, end: 202105

REACTIONS (2)
  - Suicide attempt [Unknown]
  - Intentional overdose [Unknown]

NARRATIVE: CASE EVENT DATE: 202105
